FAERS Safety Report 13989923 (Version 1)
Quarter: 2017Q3

REPORT INFORMATION
  Report Type: Spontaneous
  Country: US (occurrence: US)
  Receive Date: 20170920
  Receipt Date: 20170920
  Transmission Date: 20171128
  Serious: No
  Sender: FDA-Public Use
  Company Number: US-GLAXOSMITHKLINE-US2017143743

PATIENT
  Age: 82 Year
  Sex: Female

DRUGS (1)
  1. FLONASE [Suspect]
     Active Substance: FLUTICASONE PROPIONATE
     Indication: EAR CONGESTION
     Dosage: UNK
     Dates: end: 20170913

REACTIONS (4)
  - Nasal congestion [Unknown]
  - Off label use [Unknown]
  - Oropharyngeal pain [Unknown]
  - Adverse event [Unknown]
